FAERS Safety Report 23012953 (Version 2)
Quarter: 2024Q3

REPORT INFORMATION
  Report Type: Report from Study
  Country: MX (occurrence: MX)
  Receive Date: 20230930
  Receipt Date: 20240703
  Transmission Date: 20241017
  Serious: Yes (Other)
  Sender: NOVARTIS
  Company Number: MX-002147023-NVSC2023MX195333

PATIENT
  Sex: Male
  Weight: 68 kg

DRUGS (10)
  1. EXFORGE HCT [Suspect]
     Active Substance: AMLODIPINE BESYLATE\HYDROCHLOROTHIAZIDE\VALSARTAN
     Indication: Hypertension
     Dosage: 1 DOSAGE FORM (5/160/12.5), QD
     Route: 048
     Dates: start: 202105, end: 202308
  2. LEVOFLOXACIN [Suspect]
     Active Substance: LEVOFLOXACIN
     Indication: Product used for unknown indication
     Dosage: UNK (STARTED 2 MONTHS AGO)
     Route: 065
  3. AMLODIPINE [Concomitant]
     Active Substance: AMLODIPINE BESYLATE
     Indication: Hypertension
     Dosage: 1 DOSAGE FORM, QD (AT NIGHT) (5 MG)
     Route: 048
     Dates: start: 202308
  4. VALSARTAN [Concomitant]
     Active Substance: VALSARTAN
     Indication: Hypertension
     Dosage: 1 DOSAGE FORM, QD (80 MG) (IN THE MORNING)
     Route: 048
     Dates: start: 202308
  5. ATORVASTATIN [Concomitant]
     Active Substance: ATORVASTATIN
     Indication: Hypertension
     Dosage: 1 DOSAGE FORM, QD (20 MG)
     Route: 048
     Dates: start: 2021
  6. LINAGLIPTIN [Concomitant]
     Active Substance: LINAGLIPTIN
     Indication: Diabetes mellitus
     Dosage: 1 DOSAGE FORM, QD (5 MG) (STARTED A YEAR AND A HALF AGO)
     Route: 048
  7. INSULIN NOS [Concomitant]
     Active Substance: INSULIN NOS
     Indication: Diabetes mellitus
     Dosage: 20 IU, QD
     Route: 058
     Dates: start: 2010
  8. CLOPIDOGREL [Concomitant]
     Active Substance: CLOPIDOGREL BISULFATE
     Indication: Anticoagulant therapy
     Dosage: 1 DOSAGE FORM, QD (75 MG)
     Route: 048
     Dates: start: 2021
  9. METOPROLOL [Concomitant]
     Active Substance: METOPROLOL
     Indication: Hypertension
     Dosage: 0.5 MG, BID (100 MG) (IN THE MORNING AND AT NIGHT)
     Route: 048
     Dates: start: 2021
  10. METFORMIN [Concomitant]
     Active Substance: METFORMIN HYDROCHLORIDE
     Indication: Diabetes mellitus
     Dosage: 1 DOSAGE FORM, QD (850 MG) (WITH MEALS)
     Route: 048
     Dates: start: 2000

REACTIONS (9)
  - Prostate infection [Unknown]
  - Prostatic specific antigen increased [Not Recovered/Not Resolved]
  - Prostatomegaly [Unknown]
  - Pollakiuria [Unknown]
  - Hypotension [Recovered/Resolved]
  - Dizziness [Recovered/Resolved]
  - Urinary tract infection [Recovered/Resolved]
  - Oropharyngeal discomfort [Unknown]
  - Dysuria [Unknown]

NARRATIVE: CASE EVENT DATE: 20230101
